FAERS Safety Report 7831073-1 (Version None)
Quarter: 2011Q4

REPORT INFORMATION
  Report Type: 
  Country: None (occurrence: None)
  Receive Date: 20111021
  Receipt Date: 20111012
  Transmission Date: 20120403
  Serious: Yes (Other)
  Sender: FDA-Public Use
  Company Number: PHHY2011FR90872

PATIENT

DRUGS (2)
  1. ILARIS [Suspect]
     Dosage: UNK
  2. PLAVIX [Suspect]

REACTIONS (1)
  - THROMBOSIS [None]
